FAERS Safety Report 8427509-8 (Version None)
Quarter: 2012Q2

REPORT INFORMATION
  Report Type: 
  Country: None (occurrence: None)
  Receive Date: 20120611
  Receipt Date: 20120529
  Transmission Date: 20120825
  Serious: No
  Sender: FDA-Public Use
  Company Number: US-ASTRAZENECA-2010SE31416

PATIENT
  Sex: Female
  Weight: 56.7 kg

DRUGS (8)
  1. SEROQUEL XR [Suspect]
     Indication: DEPRESSION
     Route: 048
     Dates: start: 20090401, end: 20100701
  2. SEROQUEL XR [Suspect]
     Route: 048
     Dates: start: 20090401
  3. SEROQUEL XR [Suspect]
     Indication: POST-TRAUMATIC STRESS DISORDER
     Route: 048
     Dates: start: 20090401, end: 20100701
  4. SEROQUEL XR [Suspect]
     Route: 048
     Dates: start: 20090401
  5. SEROQUEL XR [Suspect]
     Indication: MAJOR DEPRESSION
     Route: 048
     Dates: start: 20090401, end: 20100701
  6. WELLBUTRIN [Concomitant]
  7. SEROQUEL XR [Suspect]
     Route: 048
     Dates: start: 20090401
  8. CLONOPIN [Concomitant]

REACTIONS (6)
  - THERAPEUTIC RESPONSE UNEXPECTED [None]
  - CHOKING [None]
  - OFF LABEL USE [None]
  - CATARACT [None]
  - DYSPHAGIA [None]
  - DIZZINESS [None]
